FAERS Safety Report 10494540 (Version 1)
Quarter: 2014Q4

REPORT INFORMATION
  Report Type: Spontaneous
  Country: CA (occurrence: None)
  Receive Date: 20141001
  Receipt Date: 20141001
  Transmission Date: 20150528
  Serious: Yes (Other)
  Sender: FDA-Public Use
  Company Number: 2014-2166-SPO

PATIENT
  Age: 61 Year
  Sex: Female
  Weight: 86.17 kg

DRUGS (7)
  1. ASCORBIC ACID. [Concomitant]
     Active Substance: ASCORBIC ACID
  2. VITMIN D (ERGOCALCIFEROL) [Concomitant]
  3. PROBIOTICS (PROBIOTICS NOS) [Concomitant]
  4. ESTROGEL [Suspect]
     Active Substance: ESTRADIOL
     Indication: PRODUCT USED FOR UNKNOWN INDICATION
     Dosage: 1 DF, 1 IN 1 D
  5. MELATONIN [Concomitant]
     Active Substance: MELATONIN
  6. VALERIAN (VALERIANA OFFICINALIS) (UNKNOWN) [Concomitant]
  7. OMEGA-3 (OMEGA-3 MARINE TRIGLYCERIDES) (UNKNOWN) [Concomitant]

REACTIONS (2)
  - Alopecia [None]
  - Varicose vein [None]
